FAERS Safety Report 8586566 (Version 2)
Quarter: 2013Q2

REPORT INFORMATION
  Report Type: Spontaneous
  Country: US (occurrence: US)
  Receive Date: 20120530
  Receipt Date: 20130401
  Transmission Date: 20140414
  Serious: Yes (Other)
  Sender: FDA-Public Use
  Company Number: US-ROCHE-1018484

PATIENT
  Sex: Male
  Weight: 72.64 kg

DRUGS (1)
  1. ACCUTANE [Suspect]
     Indication: ACNE
     Route: 048
     Dates: start: 200011, end: 2001

REACTIONS (10)
  - Colitis ulcerative [Unknown]
  - Anxiety [Unknown]
  - Inflammatory bowel disease [Unknown]
  - Epistaxis [Unknown]
  - Dry skin [Unknown]
  - Dry skin [Unknown]
  - Chapped lips [Unknown]
  - Upper limb fracture [Unknown]
  - Xerosis [Unknown]
  - Cheilitis [Unknown]
